FAERS Safety Report 23951668 (Version 1)
Quarter: 2024Q2

REPORT INFORMATION
  Report Type: Spontaneous
  Country: US (occurrence: None)
  Receive Date: 20240607
  Receipt Date: 20240607
  Transmission Date: 20240716
  Serious: No
  Sender: FDA-Public Use
  Company Number: None

PATIENT
  Age: 71 Year
  Sex: Female
  Weight: 78.75 kg

DRUGS (8)
  1. FAMOTIDINE [Suspect]
     Active Substance: FAMOTIDINE
     Indication: Gastrooesophageal reflux disease
     Dosage: OTHER QUANTITY : 1 TABLET(S);?FREQUENCY : DAILY;?
     Route: 048
  2. BACTRIM DS [Concomitant]
     Active Substance: SULFAMETHOXAZOLE\TRIMETHOPRIM
  3. MUTIVITAMIN [Concomitant]
  4. D [Concomitant]
  5. TURNERIC [Concomitant]
  6. MAGNESIUM [Concomitant]
     Active Substance: MAGNESIUM
  7. CRANBERRY [Concomitant]
     Active Substance: CRANBERRY
  8. C [Concomitant]

REACTIONS (12)
  - Stomatitis [None]
  - Oral herpes [None]
  - Acne [None]
  - Dry eye [None]
  - Dry skin [None]
  - Dry mouth [None]
  - Flushing [None]
  - Urinary tract infection [None]
  - Muscular weakness [None]
  - Arthralgia [None]
  - Depressed mood [None]
  - Gastrooesophageal reflux disease [None]

NARRATIVE: CASE EVENT DATE: 20240530
